FAERS Safety Report 23800542 (Version 2)
Quarter: 2024Q2

REPORT INFORMATION
  Report Type: Spontaneous
  Country: ES (occurrence: ES)
  Receive Date: 20240430
  Receipt Date: 20240515
  Transmission Date: 20240716
  Serious: Yes (Other)
  Sender: FDA-Public Use
  Company Number: ES-002147023-NVSC2024ES090603

PATIENT
  Age: 83 Year
  Sex: Male

DRUGS (2)
  1. LUTATHERA [Suspect]
     Active Substance: LUTETIUM OXODOTREOTIDE LU-177
     Indication: Pancreatic neuroendocrine tumour
     Dosage: UNK (FIRST DOSE)
     Route: 065
     Dates: start: 20240320
  2. LANREOTIDE ACETATE [Concomitant]
     Active Substance: LANREOTIDE ACETATE
     Indication: Pancreatic neuroendocrine tumour
     Dosage: UNK (AUTOGEL)
     Route: 065

REACTIONS (3)
  - Oesophagitis [Unknown]
  - Dysphagia [Unknown]
  - Odynophagia [Unknown]

NARRATIVE: CASE EVENT DATE: 20240322
